FAERS Safety Report 8263358-1 (Version None)
Quarter: 2012Q2

REPORT INFORMATION
  Report Type: 
  Country: None (occurrence: None)
  Receive Date: 20120405
  Receipt Date: 20120402
  Transmission Date: 20120825
  Serious: Yes (Hospitalization)
  Sender: FDA-Public Use
  Company Number: US-AMGEN-USASP2012021034

PATIENT
  Age: 82 Year
  Sex: Female

DRUGS (18)
  1. CALCIUM CARBONATE [Concomitant]
  2. DIOVAN [Concomitant]
  3. OMEPRAZOLE [Concomitant]
  4. AMLODIPINE [Concomitant]
  5. VITAMIN D [Concomitant]
  6. FISH OIL [Concomitant]
  7. HYDROCORTISONE [Concomitant]
  8. HYDROCODONE BITARTRATE [Concomitant]
  9. ZETIA [Concomitant]
  10. VITAMIN C                          /00008001/ [Concomitant]
  11. GLUCOSAMINE [Concomitant]
  12. MG NOR [Concomitant]
  13. POTASSIUM [Concomitant]
  14. MULTIVITAMIN                       /00097801/ [Concomitant]
  15. PROLIA [Suspect]
     Indication: OSTEOPOROSIS POSTMENOPAUSAL
  16. TORSEMIDE [Concomitant]
  17. LEVOXYL [Concomitant]
  18. COLACE [Concomitant]

REACTIONS (8)
  - DRY SKIN [None]
  - ARTERIAL RUPTURE [None]
  - MUSCLE SPASMS [None]
  - ABDOMINAL PAIN UPPER [None]
  - BACK PAIN [None]
  - RASH [None]
  - SCIATICA [None]
  - MYALGIA [None]
